FAERS Safety Report 8544472-X (Version None)
Quarter: 2012Q3

REPORT INFORMATION
  Report Type: 
  Country: None (occurrence: None)
  Receive Date: 20120727
  Receipt Date: 20120717
  Transmission Date: 20120928
  Serious: Yes (Death)
  Sender: FDA-Public Use
  Company Number: TN-SANOFI-AVENTIS-2012SA050796

PATIENT
  Age: 69 Year
  Sex: Female

DRUGS (8)
  1. BISOPROLOL FUMARATE [Concomitant]
     Route: 048
     Dates: end: 20120525
  2. AMLODIPINE [Concomitant]
     Route: 048
     Dates: end: 20120525
  3. PLAVIX [Suspect]
     Indication: STENT PLACEMENT
     Route: 048
     Dates: start: 20101201, end: 20120525
  4. LASIX [Concomitant]
     Route: 048
     Dates: end: 20120525
  5. INSULIN [Concomitant]
     Route: 058
     Dates: end: 20120525
  6. PLAVIX [Suspect]
     Route: 048
     Dates: start: 20101201, end: 20120525
  7. ASPEGIC 1000 [Concomitant]
     Route: 048
     Dates: end: 20120525
  8. HYPOTEN [Concomitant]
     Route: 048
     Dates: end: 20120525

REACTIONS (2)
  - CARDIAC ARREST [None]
  - HYPERKALAEMIA [None]
